FAERS Safety Report 9188819 (Version 1)
Quarter: 2013Q1

REPORT INFORMATION
  Report Type: Report from Study
  Country: VE (occurrence: VE)
  Receive Date: 20130326
  Receipt Date: 20130326
  Transmission Date: 20140127
  Serious: Yes (Other)
  Sender: FDA-Public Use
  Company Number: VE-ABBOTT-13P-178-1065953-00

PATIENT
  Sex: Male
  Weight: 97 kg

DRUGS (3)
  1. HUMIRA [Suspect]
     Indication: COLITIS ULCERATIVE
     Route: 058
     Dates: start: 20120622, end: 201211
  2. AZULFIDINE [Concomitant]
     Indication: COLITIS ULCERATIVE
     Dosage: DAILY, ROUTE VO
  3. ASAPRIN [Concomitant]
     Indication: COLITIS ULCERATIVE
     Dosage: ROUTE VO

REACTIONS (2)
  - Anal fistula [Not Recovered/Not Resolved]
  - Anal haemorrhage [Not Recovered/Not Resolved]
